FAERS Safety Report 8407939 (Version 3)
Quarter: 2013Q1

REPORT INFORMATION
  Report Type: Report from Study
  Country: US (occurrence: US)
  Receive Date: 20120215
  Receipt Date: 20130305
  Transmission Date: 20140127
  Serious: Yes (Hospitalization)
  Sender: FDA-Public Use
  Company Number: US-RB-024315-11

PATIENT
  Age: 47 Year
  Sex: Male

DRUGS (14)
  1. SUBOXONE TABLET [Suspect]
     Route: 060
     Dates: start: 2006
  2. SUBOXONE TABLET [Suspect]
     Indication: DRUG DEPENDENCE
     Route: 060
     Dates: start: 2009
  3. SUBOXONE TABLET [Suspect]
     Route: 060
  4. SUBOXONE TABLET [Suspect]
     Route: 060
  5. SUBOXONE FILM [Suspect]
     Dosage: SUBOXONE FILM
     Route: 060
     Dates: start: 2010
  6. SUBOXONE FILM [Suspect]
     Indication: DRUG DEPENDENCE
     Dosage: SUBLINGUAL FILM / PRESCRIBED 16 MG BUT CUTTING DOSE
     Route: 060
     Dates: start: 20110328
  7. SUBOXONE FILM [Suspect]
     Dosage: SUBOXONE FILM
     Route: 060
     Dates: start: 2011
  8. SUBUTEX [Suspect]
     Indication: DRUG DEPENDENCE
     Route: 060
     Dates: start: 2011, end: 201112
  9. BUPRENORPHINE [Suspect]
     Indication: DRUG DEPENDENCE
     Dosage: DOSAGE DETAILS UNKNOWN
     Route: 065
     Dates: start: 2011
  10. LISINOPRIL [Suspect]
     Indication: HYPERTENSION
     Route: 048
     Dates: start: 201107
  11. THORAZINE [Concomitant]
     Indication: NAUSEA
     Dosage: 1 TABLET BY MOUTH
     Route: 048
     Dates: start: 2010
  12. LOPRESSOR [Concomitant]
     Indication: HYPERTENSION
     Dosage: DOSING INFORMATION UNKNOWN
     Route: 065
  13. CLONIDINE [Concomitant]
     Indication: HYPERTENSION
     Route: 048
  14. VALIUM [Concomitant]
     Indication: ANXIETY
     Route: 048

REACTIONS (18)
  - Somnolence [Recovered/Resolved]
  - Nausea [Recovered/Resolved]
  - Increased appetite [Recovered/Resolved]
  - Wrong technique in drug usage process [Recovered/Resolved]
  - Mucosal atrophy [Recovering/Resolving]
  - Abdominal distension [Recovering/Resolving]
  - Drug ineffective [Unknown]
  - Intentional overdose [Recovered/Resolved]
  - Butterfly rash [Recovered/Resolved]
  - Abdominal discomfort [Recovered/Resolved]
  - Condition aggravated [Recovered/Resolved]
  - Arthropathy [Recovering/Resolving]
  - Blood pressure increased [Recovering/Resolving]
  - Heart rate increased [Recovering/Resolving]
  - Weight decreased [Not Recovered/Not Resolved]
  - Coeliac disease [Not Recovered/Not Resolved]
  - Loss of employment [None]
  - Economic problem [None]
